FAERS Safety Report 12812037 (Version 1)
Quarter: 2016Q4

REPORT INFORMATION
  Report Type: Spontaneous
  Country: US (occurrence: US)
  Receive Date: 20161005
  Receipt Date: 20161005
  Transmission Date: 20170207
  Serious: No
  Sender: FDA-Public Use
  Company Number: US-AMGEN-USASP2016072216

PATIENT
  Age: 78 Year
  Sex: Female

DRUGS (1)
  1. PROLIA [Suspect]
     Active Substance: DENOSUMAB
     Indication: OSTEOPOROSIS
     Dosage: UNK
     Route: 065
     Dates: start: 20160523

REACTIONS (13)
  - Hypoaesthesia oral [Not Recovered/Not Resolved]
  - Abdominal pain upper [Not Recovered/Not Resolved]
  - Tongue discomfort [Unknown]
  - Pain [Unknown]
  - Joint swelling [Unknown]
  - Blood pressure fluctuation [Unknown]
  - Paraesthesia [Recovered/Resolved]
  - Ear infection [Not Recovered/Not Resolved]
  - Groin pain [Unknown]
  - Oral pain [Unknown]
  - Feeding disorder [Unknown]
  - Myalgia [Unknown]
  - Musculoskeletal pain [Unknown]

NARRATIVE: CASE EVENT DATE: 201605
